FAERS Safety Report 11070529 (Version 2)
Quarter: 2015Q2

REPORT INFORMATION
  Report Type: Other
  Country: US (occurrence: US)
  Receive Date: 20150427
  Receipt Date: 20150604
  Transmission Date: 20150821
  Serious: Yes (Hospitalization, Other)
  Sender: FDA-Public Use
  Company Number: US-ACORDA-ACO_110824_2015

PATIENT
  Age: 56 Year
  Sex: Male
  Weight: 83.9 kg

DRUGS (2)
  1. TYSABRI [Concomitant]
     Active Substance: NATALIZUMAB
     Indication: MULTIPLE SCLEROSIS
     Dosage: 300 MG, MONTHLY
     Route: 042
     Dates: start: 2008, end: 20150313
  2. AMPYRA [Suspect]
     Active Substance: DALFAMPRIDINE
     Indication: MULTIPLE SCLEROSIS
     Dosage: 10 MG, BID
     Route: 048
     Dates: start: 20141224

REACTIONS (4)
  - Partial seizures [Unknown]
  - Fall [Recovering/Resolving]
  - Subdural haematoma [Recovered/Resolved with Sequelae]
  - Brain midline shift [Recovered/Resolved with Sequelae]

NARRATIVE: CASE EVENT DATE: 201412
